FAERS Safety Report 8296145-9 (Version None)
Quarter: 2012Q2

REPORT INFORMATION
  Report Type: 
  Country: None (occurrence: None)
  Receive Date: 20120418
  Receipt Date: 20120412
  Transmission Date: 20120825
  Serious: Yes (Hospitalization)
  Sender: FDA-Public Use
  Company Number: FR-GLAXOSMITHKLINE-B0792934A

PATIENT
  Sex: Female
  Weight: 65 kg

DRUGS (4)
  1. LENOGRASTIM [Suspect]
     Indication: PRODUCT USED FOR UNKNOWN INDICATION
     Route: 065
  2. VOTRIENT [Suspect]
     Indication: NEOPLASM
     Route: 048
     Dates: start: 20111207
  3. MICARDIS [Concomitant]
     Indication: HYPERTENSION
  4. CISPLATIN [Suspect]
     Indication: NEOPLASM
     Dosage: 496MG CUMULATIVE DOSE
     Route: 042
     Dates: start: 20111214

REACTIONS (5)
  - GASTROINTESTINAL DISORDER [None]
  - GENERAL PHYSICAL HEALTH DETERIORATION [None]
  - NAUSEA [None]
  - HYPERTENSION [None]
  - VOMITING [None]
